FAERS Safety Report 7829122-X (Version None)
Quarter: 2011Q4

REPORT INFORMATION
  Report Type: 
  Country: None (occurrence: None)
  Receive Date: 20111020
  Receipt Date: 20111006
  Transmission Date: 20120403
  Serious: Yes (Other)
  Sender: FDA-Public Use
  Company Number: PHHY2011BR88085

PATIENT
  Sex: Female
  Weight: 84 kg

DRUGS (9)
  1. FORMOTEROL FUMARATE [Suspect]
     Indication: EMPHYSEMA
  2. FORMOTEROL FUMARATE [Suspect]
     Indication: PNEUMONIA
     Dosage: 1 DF, BID
  3. BECLOMETHASONE DIPROPIONATE [Suspect]
     Indication: PNEUMONIA
  4. SPIRIVA [Concomitant]
  5. BETAHISTINE HYDROCHLORIDE [Concomitant]
     Indication: LABYRINTHITIS
     Dosage: 1 DF, BID
     Route: 048
  6. OMEPRAZOLE [Concomitant]
     Indication: GASTRITIS
     Dosage: 1 DF, BID
     Route: 048
  7. SIMVASTATIN [Concomitant]
     Indication: BLOOD CHOLESTEROL INCREASED
     Dosage: 1 TABLET AT NIGHT
     Route: 048
  8. BECLOMETHASONE DIPROPIONATE [Suspect]
     Indication: EMPHYSEMA
  9. FLUTICASONA [Concomitant]

REACTIONS (8)
  - PAIN IN EXTREMITY [None]
  - MALAISE [None]
  - TACHYCARDIA [None]
  - NAUSEA [None]
  - DIARRHOEA [None]
  - VOMITING [None]
  - ANGINA PECTORIS [None]
  - PLEURITIC PAIN [None]
